FAERS Safety Report 9835775 (Version 3)
Quarter: 2014Q1

REPORT INFORMATION
  Report Type: Spontaneous
  Country: US (occurrence: US)
  Receive Date: 20140122
  Receipt Date: 20140224
  Transmission Date: 20141002
  Serious: Yes (Other)
  Sender: FDA-Public Use
  Company Number: PHEH2013US002408

PATIENT
  Sex: Female

DRUGS (7)
  1. VALSARTAN + HCT [Suspect]
     Indication: HYPERTENSION
     Dosage: 1 DF (160 MG VALS AND 25 MG HCTZ), QD
     Route: 048
  2. VALSARTAN [Suspect]
     Dosage: 2 DF, DAILY
  3. NITROFURANTOIN [Suspect]
     Indication: CYSTITIS
     Route: 048
  4. MACROBID [Suspect]
  5. CRESTOR [Suspect]
     Indication: BLOOD CHOLESTEROL INCREASED
     Route: 048
  6. EPINEPHRINE [Suspect]
  7. VALACYCLOVIR HYDROCHLORIDE [Concomitant]
     Route: 048

REACTIONS (12)
  - Cerebrovascular accident [Unknown]
  - Blindness [Unknown]
  - Aphasia [Unknown]
  - Feeling abnormal [Unknown]
  - Tremor [Unknown]
  - Musculoskeletal discomfort [Unknown]
  - Pollakiuria [Unknown]
  - Lethargy [Unknown]
  - Palpitations [Unknown]
  - Bone pain [Unknown]
  - Dyspnoea [Unknown]
  - Heart rate increased [Unknown]
